FAERS Safety Report 16742977 (Version 1)
Quarter: 2019Q3

REPORT INFORMATION
  Report Type: Report from Study
  Country: PE (occurrence: PE)
  Receive Date: 20190827
  Receipt Date: 20190827
  Transmission Date: 20191005
  Serious: Yes (Other)
  Sender: FDA-Public Use
  Company Number: PE-SA-2018SA059632

PATIENT
  Age: 48 Year
  Sex: Female

DRUGS (1)
  1. ALEMTUZUMAB [Suspect]
     Active Substance: ALEMTUZUMAB
     Indication: MULTIPLE SCLEROSIS
     Dosage: 12 MG, QD
     Route: 041
     Dates: start: 20170622, end: 20170624

REACTIONS (37)
  - Urinary tract infection [Recovered/Resolved]
  - Haemoglobin decreased [Not Recovered/Not Resolved]
  - Amnesia [Unknown]
  - Varicella virus test positive [Not Recovered/Not Resolved]
  - Escherichia infection [Recovered/Resolved]
  - Klebsiella infection [Recovered/Resolved]
  - Mean cell volume decreased [Not Recovered/Not Resolved]
  - Urinary sediment present [Recovering/Resolving]
  - Post herpetic neuralgia [Recovering/Resolving]
  - Red cell distribution width increased [Not Recovered/Not Resolved]
  - Red blood cell sedimentation rate increased [Not Recovered/Not Resolved]
  - Nitrite urine present [Unknown]
  - Herpes zoster [Recovering/Resolving]
  - Iron deficiency anaemia [Not Recovered/Not Resolved]
  - Mean cell haemoglobin decreased [Not Recovered/Not Resolved]
  - Leukopenia [Not Recovered/Not Resolved]
  - Neutrophil percentage increased [Not Recovered/Not Resolved]
  - Platelet count increased [Recovered/Resolved]
  - Urinary incontinence [Unknown]
  - Urticaria [Recovering/Resolving]
  - Anisocytosis [Not Recovered/Not Resolved]
  - Lymphocyte count decreased [Not Recovered/Not Resolved]
  - Culture urine positive [Recovered/Resolved]
  - Blood bilirubin unconjugated decreased [Not Recovered/Not Resolved]
  - Blood bilirubin decreased [Not Recovered/Not Resolved]
  - Hypochromasia [Recovered/Resolved]
  - White blood cell count increased [Not Recovered/Not Resolved]
  - Microcytosis [Not Recovered/Not Resolved]
  - Lymphopenia [Not Recovered/Not Resolved]
  - C-reactive protein increased [Unknown]
  - White blood cells urine positive [Not Recovered/Not Resolved]
  - Lymphocyte percentage decreased [Recovering/Resolving]
  - Haematocrit decreased [Not Recovered/Not Resolved]
  - Hypothyroidism [Not Recovered/Not Resolved]
  - Protein total increased [Unknown]
  - Red blood cells urine positive [Not Recovered/Not Resolved]
  - Red blood cell count decreased [Not Recovered/Not Resolved]

NARRATIVE: CASE EVENT DATE: 2018
